FAERS Safety Report 4429189-5 (Version None)
Quarter: 2004Q3

REPORT INFORMATION
  Report Type: 
  Country: None (occurrence: None)
  Receive Date: 20040726
  Receipt Date: 20040308
  Transmission Date: 20050211
  Serious: No
  Sender: FDA-Public Use
  Company Number: USA040258182

PATIENT
  Age: 84 Year
  Sex: Female

DRUGS (5)
  1. FORTEO [Suspect]
     Indication: OSTEOPOROSIS
     Dosage: 20 UG/1 DAY
     Dates: start: 20030901
  2. CARDIZEM [Concomitant]
  3. PERSANTINE-75 [Concomitant]
  4. METOPROLOL [Concomitant]
  5. METFORMIN HCL [Concomitant]

REACTIONS (8)
  - BURNING SENSATION [None]
  - CRYING [None]
  - HUNGER [None]
  - INSOMNIA [None]
  - MOOD ALTERED [None]
  - OVERDOSE [None]
  - RESTLESSNESS [None]
  - SCREAMING [None]
